FAERS Safety Report 8602842-5 (Version None)
Quarter: 2012Q3

REPORT INFORMATION
  Report Type: 
  Country: None (occurrence: None)
  Receive Date: 20120817
  Receipt Date: 20120814
  Transmission Date: 20120928
  Serious: Yes (Congenital Anomaly)
  Sender: FDA-Public Use
  Company Number: US-VIIV HEALTHCARE LIMITED-A0968483A

PATIENT
  Sex: Male
  Weight: 2.9 kg

DRUGS (4)
  1. COMBIVIR [Suspect]
     Indication: ANTIRETROVIRAL THERAPY
     Dosage: 2TAB PER DAY
     Route: 048
     Dates: start: 20110510
  2. KALETRA [Suspect]
     Indication: ANTIRETROVIRAL THERAPY
     Dosage: 4TAB PER DAY
     Route: 048
     Dates: start: 20110510
  3. COCAINE [Concomitant]
     Indication: ENVIRONMENTAL EXPOSURE
     Route: 064
  4. TETRAHYDROCANNABINOL [Concomitant]
     Indication: ENVIRONMENTAL EXPOSURE
     Route: 064

REACTIONS (3)
  - FOETAL EXPOSURE DURING PREGNANCY [None]
  - PRENATAL SCREENING TEST ABNORMAL [None]
  - DRUG SCREEN POSITIVE [None]
